FAERS Safety Report 5560807-4 (Version None)
Quarter: 2007Q4

REPORT INFORMATION
  Report Type: 
  Country: None (occurrence: None)
  Receive Date: 20071215
  Receipt Date: 20071119
  Transmission Date: 20080405
  Serious: No
  Sender: FDA-Public Use
  Company Number: US-ABBOTT-07P-163-0425777-00

PATIENT
  Sex: Female
  Weight: 72.64 kg

DRUGS (3)
  1. HUMIRA [Suspect]
     Indication: CROHN'S DISEASE
     Dosage: LOADING DOSE
     Route: 058
     Dates: start: 20070701, end: 20070701
  2. HUMIRA [Suspect]
     Route: 058
     Dates: start: 20070701, end: 20071104
  3. HUMIRA [Suspect]
     Route: 058
     Dates: end: 20071104

REACTIONS (3)
  - CROHN'S DISEASE [None]
  - DEFAECATION URGENCY [None]
  - INFLAMMATORY BOWEL DISEASE [None]
